FAERS Safety Report 5593111-9 (Version None)
Quarter: 2008Q1

REPORT INFORMATION
  Report Type: 
  Country: None (occurrence: None)
  Receive Date: 20080114
  Receipt Date: 20080114
  Transmission Date: 20080703
  Serious: Yes (Other)
  Sender: FDA-Public Use
  Company Number: None

PATIENT
  Sex: Female

DRUGS (2)
  1. ATIVAN [Suspect]
     Indication: CONVULSION
     Dosage: 0.5-1 MG Q 4 HR PRN
  2. DILAUDID [Suspect]
     Indication: PAIN
     Dosage: 1 MG IV Q 2 HR
     Route: 042

REACTIONS (1)
  - SEDATION [None]
